FAERS Safety Report 11273953 (Version 2)
Quarter: 2015Q3

REPORT INFORMATION
  Report Type: Report from Study
  Country: US (occurrence: US)
  Receive Date: 20150715
  Receipt Date: 20150907
  Transmission Date: 20151125
  Serious: No
  Sender: FDA-Public Use
  Company Number: US-AMGEN-USASP2015068691

PATIENT
  Age: 64 Year
  Sex: Male

DRUGS (4)
  1. METHOTREXATE [Concomitant]
     Active Substance: METHOTREXATE
     Dosage: UNK
     Dates: end: 2015
  2. PRAVASTATIN [Suspect]
     Active Substance: PRAVASTATIN\PRAVASTATIN SODIUM
     Indication: PRODUCT USED FOR UNKNOWN INDICATION
     Dosage: UNK
     Route: 065
  3. PREDNISONE. [Concomitant]
     Active Substance: PREDNISONE
     Dosage: UNK
  4. ENBREL [Suspect]
     Active Substance: ETANERCEPT
     Indication: RHEUMATOID ARTHRITIS
     Dosage: 50 MG, QWK
     Route: 065
     Dates: start: 20150210

REACTIONS (13)
  - Pruritus [Not Recovered/Not Resolved]
  - Injection site rash [Unknown]
  - Pyrexia [Unknown]
  - Injection site pruritus [Unknown]
  - Drug effect incomplete [Unknown]
  - Nasopharyngitis [Recovered/Resolved]
  - Abdominal discomfort [Unknown]
  - Seasonal allergy [Recovered/Resolved]
  - Diarrhoea [Recovering/Resolving]
  - Faecal incontinence [Recovering/Resolving]
  - Upper respiratory tract infection [Recovered/Resolved]
  - Influenza [Recovered/Resolved]
  - Insomnia [Not Recovered/Not Resolved]

NARRATIVE: CASE EVENT DATE: 2015
